FAERS Safety Report 16038051 (Version 2)
Quarter: 2019Q2

REPORT INFORMATION
  Report Type: Spontaneous
  Country: US (occurrence: US)
  Receive Date: 20190305
  Receipt Date: 20190405
  Transmission Date: 20190711
  Serious: Yes (Death, Other)
  Sender: FDA-Public Use
  Company Number: US-ASTRAZENECA-2019SE35921

PATIENT
  Age: 24482 Day
  Sex: Male

DRUGS (16)
  1. ATORVASTATIN [Concomitant]
     Active Substance: ATORVASTATIN
  2. CALCIUM [Concomitant]
     Active Substance: CALCIUM
  3. VICTOZA [Suspect]
     Active Substance: LIRAGLUTIDE
     Route: 065
     Dates: start: 201509, end: 201601
  4. VICTOZA [Suspect]
     Active Substance: LIRAGLUTIDE
     Route: 065
     Dates: start: 2008
  5. CARVEDILOL. [Concomitant]
     Active Substance: CARVEDILOL
  6. MIRTAZAPINE. [Concomitant]
     Active Substance: MIRTAZAPINE
  7. NOVOLIN [Concomitant]
     Active Substance: INSULIN HUMAN
  8. INSULIN [Concomitant]
     Active Substance: INSULIN NOS
  9. BYETTA [Suspect]
     Active Substance: EXENATIDE
     Route: 065
     Dates: start: 201407, end: 201601
  10. ACETAMINOPHEN-CODEINE [Concomitant]
     Active Substance: ACETAMINOPHEN\CODEINE PHOSPHATE
  11. LOVENOX [Concomitant]
     Active Substance: ENOXAPARIN SODIUM
  12. LISINOPRIL. [Concomitant]
     Active Substance: LISINOPRIL
  13. BYETTA [Suspect]
     Active Substance: EXENATIDE
     Route: 065
     Dates: start: 2007, end: 2008
  14. GABAPENTIN. [Concomitant]
     Active Substance: GABAPENTIN
  15. ISOSORBIDE MONONITRATE. [Concomitant]
     Active Substance: ISOSORBIDE MONONITRATE
  16. OMEPRAZOLE. [Concomitant]
     Active Substance: OMEPRAZOLE

REACTIONS (6)
  - Pulmonary embolism [Fatal]
  - Pancreatic carcinoma metastatic [Fatal]
  - Metastases to liver [Unknown]
  - Pancreatic failure [Unknown]
  - Pancreatic carcinoma [Fatal]
  - Metastases to lung [Unknown]

NARRATIVE: CASE EVENT DATE: 20160323
